FAERS Safety Report 4534053-7 (Version None)
Quarter: 2004Q4

REPORT INFORMATION
  Report Type: 
  Country: None (occurrence: None)
  Receive Date: 20041221
  Receipt Date: 20041221
  Transmission Date: 20050328
  Serious: Yes (Hospitalization)
  Sender: FDA-Public Use
  Company Number: None

PATIENT
  Age: 2 Year
  Sex: Female
  Weight: 11.3399 kg

DRUGS (2)
  1. XOPENEX [Suspect]
     Indication: BRONCHITIS
     Dosage: 0.63 VIAL    EVERY 4-6 HOUR   ORAL
     Route: 048
     Dates: start: 20040101, end: 20041211
  2. XOPENEX [Suspect]
     Indication: UPPER RESPIRATORY TRACT INFECTION
     Dosage: 0.63 VIAL    EVERY 4-6 HOUR   ORAL
     Route: 048
     Dates: start: 20040101, end: 20041211

REACTIONS (2)
  - DYSPNOEA [None]
  - HEART RATE DECREASED [None]
